FAERS Safety Report 19006731 (Version 1)
Quarter: 2021Q1

REPORT INFORMATION
  Report Type: Spontaneous
  Country: US (occurrence: US)
  Receive Date: 20210315
  Receipt Date: 20210315
  Transmission Date: 20210420
  Serious: No
  Sender: FDA-Public Use
  Company Number: US-GLAXOSMITHKLINE-US2021060572

PATIENT
  Sex: Female

DRUGS (1)
  1. FLOVENT HFA [Suspect]
     Active Substance: FLUTICASONE PROPIONATE
     Indication: PRODUCT USED FOR UNKNOWN INDICATION
     Dosage: UNK,110MCG DC INH AER 120 ACT
     Route: 055

REACTIONS (4)
  - Exposure via eye contact [Unknown]
  - Wrong technique in device usage process [Unknown]
  - Eye irritation [Recovered/Resolved]
  - Accidental exposure to product [Unknown]
